FAERS Safety Report 7842713 (Version 3)
Quarter: 2014Q1

REPORT INFORMATION
  Report Type: Spontaneous
  Country: US (occurrence: US)
  Receive Date: 20110307
  Receipt Date: 20140317
  Transmission Date: 20141002
  Serious: Yes (Other)
  Sender: FDA-Public Use
  Company Number: US-BIOGENIDEC-2007BI002247

PATIENT
  Age: 38 Year
  Sex: Female
  Weight: 80 kg

DRUGS (12)
  1. AVONEX [Suspect]
     Indication: MULTIPLE SCLEROSIS
     Route: 030
     Dates: start: 20050701, end: 20050901
  2. AVONEX [Suspect]
     Indication: MULTIPLE SCLEROSIS
     Route: 030
     Dates: start: 20060201
  3. AVONEX [Suspect]
     Indication: MULTIPLE SCLEROSIS
     Route: 030
     Dates: start: 2012, end: 2013
  4. LAMICTAL [Concomitant]
     Route: 048
  5. PROPANOLOL [Concomitant]
     Route: 048
  6. BUSPAR [Concomitant]
     Route: 048
  7. COPAXONE [Concomitant]
     Route: 058
     Dates: start: 201304
  8. GABITRIL [Concomitant]
     Route: 048
  9. LEXAPRO [Concomitant]
     Route: 048
  10. NEURONTIN [Concomitant]
     Route: 048
  11. AMANTADINE [Concomitant]
     Route: 048
  12. TRAZADONE [Concomitant]
     Route: 048

REACTIONS (14)
  - Hepatitis C [Recovered/Resolved]
  - Convulsion [Recovered/Resolved]
  - Crohn^s disease [Unknown]
  - Bipolar disorder [Unknown]
  - Hidradenitis [Unknown]
  - Hepatic steatosis [Unknown]
  - Nephrolithiasis [Unknown]
  - Drug abuse [Unknown]
  - Fatigue [Recovered/Resolved]
  - Influenza like illness [Recovered/Resolved]
  - Depression [Unknown]
  - Anxiety [Unknown]
  - Hypersensitivity [Unknown]
  - Skin disorder [Not Recovered/Not Resolved]
